FAERS Safety Report 21025945 (Version 1)
Quarter: 2022Q2

REPORT INFORMATION
  Report Type: Spontaneous
  Country: JP (occurrence: JP)
  Receive Date: 20220630
  Receipt Date: 20220630
  Transmission Date: 20220720
  Serious: Yes (Other)
  Sender: FDA-Public Use
  Company Number: JP-BRISTOL-MYERS SQUIBB COMPANY-2022-065131

PATIENT
  Age: 68 Year
  Sex: Female

DRUGS (2)
  1. YERVOY [Suspect]
     Active Substance: IPILIMUMAB
     Indication: Malignant melanoma
  2. OPDIVO [Suspect]
     Active Substance: NIVOLUMAB
     Indication: Malignant melanoma

REACTIONS (5)
  - Toxic skin eruption [Unknown]
  - Immune-mediated hepatic disorder [Unknown]
  - Decreased appetite [Unknown]
  - Hypopituitarism [Unknown]
  - Gastrointestinal disorder [Unknown]
